FAERS Safety Report 4422805-3 (Version None)
Quarter: 2004Q3

REPORT INFORMATION
  Report Type: 
  Country: None (occurrence: None)
  Receive Date: 20040719
  Receipt Date: 20040109
  Transmission Date: 20050211
  Serious: Yes (Hospitalization)
  Sender: FDA-Public Use
  Company Number: M04-INT-002

PATIENT
  Age: 75 Year
  Sex: Female

DRUGS (2)
  1. INTEGRILIN [Suspect]
     Indication: CORONARY ANGIOPLASTY
     Dosage: SEE IMAGE
     Dates: start: 20031216, end: 20031216
  2. HEPARIN [Concomitant]

REACTIONS (3)
  - HAEMOPTYSIS [None]
  - HYPOXIA [None]
  - PULMONARY HAEMORRHAGE [None]
